FAERS Safety Report 9704601 (Version 1)
Quarter: 2013Q4

REPORT INFORMATION
  Report Type: Spontaneous
  Country: US (occurrence: US)
  Receive Date: 20131122
  Receipt Date: 20131122
  Transmission Date: 20140711
  Serious: Yes (Other)
  Sender: FDA-Public Use
  Company Number: US-ACTAVIS-2013-20852

PATIENT
  Age: 44 Year
  Sex: Female
  Weight: 57 kg

DRUGS (5)
  1. LORATADINE/PSEUDOEPHEDRINE SULFATE (WATSON LABORATORIES) [Suspect]
     Indication: MULTIPLE ALLERGIES
     Dosage: 1 DF, DAILY
     Route: 048
     Dates: start: 20130930, end: 201310
  2. SINGULAIR [Concomitant]
     Indication: PRODUCT USED FOR UNKNOWN INDICATION
     Dosage: UNK
     Route: 065
     Dates: start: 2008
  3. L-TYROSINE [Concomitant]
     Indication: PRODUCT USED FOR UNKNOWN INDICATION
     Dosage: UNK
     Route: 065
  4. CYCLOBENZAPRINE [Concomitant]
     Indication: PRODUCT USED FOR UNKNOWN INDICATION
     Route: 065
  5. GABAPENTIN [Concomitant]
     Indication: PRODUCT USED FOR UNKNOWN INDICATION
     Route: 065

REACTIONS (3)
  - Muscle spasms [Recovered/Resolved]
  - Migraine [Recovered/Resolved]
  - Incorrect drug administration duration [Recovered/Resolved]
